FAERS Safety Report 25057120 (Version 2)
Quarter: 2025Q2

REPORT INFORMATION
  Report Type: Spontaneous
  Country: CN (occurrence: CN)
  Receive Date: 20250310
  Receipt Date: 20250409
  Transmission Date: 20250716
  Serious: Yes (Disabling)
  Sender: HETERO
  Company Number: CN-HETERO-HET2025CN01126

PATIENT
  Age: 78 Year
  Sex: Male

DRUGS (1)
  1. OSELTAMIVIR [Suspect]
     Active Substance: OSELTAMIVIR
     Indication: Influenza
     Route: 048
     Dates: start: 20250206, end: 20250217

REACTIONS (1)
  - Gamma-glutamyltransferase increased [Recovering/Resolving]

NARRATIVE: CASE EVENT DATE: 20250213
